FAERS Safety Report 12949803 (Version 1)
Quarter: 2016Q4

REPORT INFORMATION
  Report Type: Spontaneous
  Country: US (occurrence: US)
  Receive Date: 20161116
  Receipt Date: 20161116
  Transmission Date: 20170207
  Serious: Yes (Other)
  Sender: FDA-Public Use
  Company Number: None

PATIENT
  Age: 71 Year
  Sex: Female
  Weight: 55.8 kg

DRUGS (14)
  1. PROMETRIUM [Concomitant]
     Active Substance: PROGESTERONE
  2. TRIAMTERINE [Concomitant]
  3. ELIDEL [Concomitant]
     Active Substance: PIMECROLIMUS
  4. VIVELLE-DOT [Concomitant]
     Active Substance: ESTRADIOL
  5. 5-LOXIN [Concomitant]
  6. MINOXIDAL [Concomitant]
  7. BUTALBITAL [Concomitant]
     Active Substance: BUTALBITAL
  8. TOPIRAMATE. [Suspect]
     Active Substance: TOPIRAMATE
     Indication: CEREBROVASCULAR ACCIDENT PROPHYLAXIS
     Dosage: ?          QUANTITY:1 TABLET(S);?
     Route: 048
     Dates: start: 20160520, end: 20160522
  9. VISTARIL [Concomitant]
     Active Substance: HYDROXYZINE PAMOATE
  10. VALIUM [Concomitant]
     Active Substance: DIAZEPAM
  11. BIOTIN [Concomitant]
     Active Substance: BIOTIN
  12. CYCLOSPORIN [Concomitant]
     Active Substance: CYCLOSPORINE
  13. CYPROHEPTADINE. [Concomitant]
     Active Substance: CYPROHEPTADINE
  14. FINASTERIDE. [Concomitant]
     Active Substance: FINASTERIDE

REACTIONS (7)
  - Palpitations [None]
  - Dyspnoea [None]
  - Chest pain [None]
  - Gastrooesophageal reflux disease [None]
  - Abdominal pain upper [None]
  - Heart rate irregular [None]
  - Malaise [None]

NARRATIVE: CASE EVENT DATE: 20160526
